FAERS Safety Report 19836644 (Version 1)
Quarter: 2021Q3

REPORT INFORMATION
  Report Type: Spontaneous
  Country: US (occurrence: US)
  Receive Date: 20210915
  Receipt Date: 20210915
  Transmission Date: 20211014
  Serious: No
  Sender: FDA-Public Use
  Company Number: US-BIOHAVEN PHARMACEUTICALS-2021BHV00864

PATIENT
  Age: 17 Year
  Sex: Female
  Weight: 52.15 kg

DRUGS (2)
  1. NURTEC ODT [Suspect]
     Active Substance: RIMEGEPANT SULFATE
     Indication: MIGRAINE
     Dosage: 75 MG, 2X/WEEK
     Route: 048
     Dates: start: 202104, end: 202105
  2. SLYND [Concomitant]
     Active Substance: DROSPIRENONE
     Dosage: UNK
     Route: 048

REACTIONS (2)
  - Glassy eyes [Recovered/Resolved]
  - Off label use [Recovered/Resolved]

NARRATIVE: CASE EVENT DATE: 202104
